FAERS Safety Report 18034517 (Version 2)
Quarter: 2020Q3

REPORT INFORMATION
  Report Type: Spontaneous
  Country: US (occurrence: US)
  Receive Date: 20200716
  Receipt Date: 20200808
  Transmission Date: 20201103
  Serious: Yes (Hospitalization, Other)
  Sender: FDA-Public Use
  Company Number: US-009507513-2007USA004160

PATIENT
  Age: 46 Year
  Sex: Female

DRUGS (2)
  1. KEYTRUDA [Suspect]
     Active Substance: PEMBROLIZUMAB
     Indication: MICROSATELLITE INSTABILITY CANCER
  2. KEYTRUDA [Suspect]
     Active Substance: PEMBROLIZUMAB
     Indication: ENDOMETRIAL ADENOCARCINOMA
     Dosage: UNK

REACTIONS (2)
  - Complications of transplanted kidney [Not Recovered/Not Resolved]
  - Kidney transplant rejection [Not Recovered/Not Resolved]
